FAERS Safety Report 5646993-6 (Version None)
Quarter: 2008Q1

REPORT INFORMATION
  Report Type: 
  Country: None (occurrence: None)
  Receive Date: 20080303
  Receipt Date: 20080226
  Transmission Date: 20080703
  Serious: Yes (Other)
  Sender: FDA-Public Use
  Company Number: B0507970A

PATIENT
  Age: 8 Year
  Sex: Male
  Weight: 30 kg

DRUGS (4)
  1. RELENZA [Suspect]
     Indication: INFLUENZA
     Dosage: 10MG TWICE PER DAY
     Route: 055
     Dates: start: 20080208, end: 20080208
  2. PA [Concomitant]
     Dates: start: 20080207
  3. ASTOMIN [Concomitant]
     Dates: start: 20080207
  4. ZITHROMAX [Concomitant]
     Dates: start: 20080207

REACTIONS (1)
  - HALLUCINATION, AUDITORY [None]
